FAERS Safety Report 5453257-2 (Version None)
Quarter: 2007Q3

REPORT INFORMATION
  Report Type: 
  Country: None (occurrence: None)
  Receive Date: 20070914
  Receipt Date: 20070906
  Transmission Date: 20080115
  Serious: Yes (Other)
  Sender: FDA-Public Use
  Company Number: US-PFIZER INC-2007075111

PATIENT
  Sex: Male
  Weight: 91 kg

DRUGS (2)
  1. LIPITOR [Suspect]
     Indication: BLOOD CHOLESTEROL
     Dates: start: 20060101, end: 20070810
  2. BENICAR [Concomitant]
     Indication: BLOOD PRESSURE

REACTIONS (3)
  - MYALGIA [None]
  - PROTEIN TOTAL INCREASED [None]
  - RENAL FAILURE [None]
